FAERS Safety Report 19073265 (Version 1)
Quarter: 2021Q1

REPORT INFORMATION
  Report Type: Spontaneous
  Country: FR (occurrence: FR)
  Receive Date: 20210330
  Receipt Date: 20210330
  Transmission Date: 20210420
  Serious: Yes (Other)
  Sender: FDA-Public Use
  Company Number: FR-PFIZER INC-2016250535

PATIENT
  Age: 68 Year
  Sex: Male

DRUGS (1)
  1. CAVERJECT [Suspect]
     Active Substance: ALPROSTADIL
     Dosage: 1 INJECTION, SINGLE
     Dates: start: 2006

REACTIONS (5)
  - Peyronie^s disease [Unknown]
  - Micturition urgency [Unknown]
  - Fibrosis [Unknown]
  - Skin discolouration [Unknown]
  - Penis disorder [Unknown]
